FAERS Safety Report 14601890 (Version 1)
Quarter: 2018Q1

REPORT INFORMATION
  Report Type: Report from Study
  Country: FR (occurrence: FR)
  Receive Date: 20180306
  Receipt Date: 20180306
  Transmission Date: 20180509
  Serious: Yes (Hospitalization)
  Sender: FDA-Public Use
  Company Number: FR-ROCHE-1971707

PATIENT
  Age: 58 Year
  Sex: Male
  Weight: 71 kg

DRUGS (2)
  1. LENALIDOMIDE [Suspect]
     Active Substance: LENALIDOMIDE
     Indication: DIFFUSE LARGE B-CELL LYMPHOMA
     Dosage: LAST DOSE PRIOR TO SAE: 10 MG ON 05/APR/2017 (CYCLE 20)
     Route: 048
     Dates: start: 20151127
  2. OBINUTUZUMAB. [Suspect]
     Active Substance: OBINUTUZUMAB
     Indication: DIFFUSE LARGE B-CELL LYMPHOMA
     Dosage: LAST DOSE PRIOR TO SAE: 1000 MG ON 08/JUN/2017 (CYCLE 20)
     Route: 042
     Dates: start: 20151127

REACTIONS (1)
  - Cholelithiasis [Recovered/Resolved with Sequelae]

NARRATIVE: CASE EVENT DATE: 20170724
